FAERS Safety Report 23088413 (Version 1)
Quarter: 2023Q4

REPORT INFORMATION
  Report Type: Spontaneous
  Country: US (occurrence: US)
  Receive Date: 20231020
  Receipt Date: 20231020
  Transmission Date: 20240110
  Serious: Yes (Hospitalization, Other)
  Sender: FDA-Public Use
  Company Number: US-BAXTER-2023BAX033273

PATIENT
  Age: 75 Year
  Sex: Female

DRUGS (3)
  1. LEVOFLOXACIN [Suspect]
     Active Substance: LEVOFLOXACIN
     Indication: Antibiotic therapy
     Route: 065
  2. CLINDAMYCIN [Suspect]
     Active Substance: CLINDAMYCIN
     Indication: Antibiotic therapy
     Route: 065
  3. CEFTRIAXONE [Suspect]
     Active Substance: CEFTRIAXONE\CEFTRIAXONE SODIUM
     Dosage: ONE DOSE
     Route: 065

REACTIONS (9)
  - Acute myocardial infarction [Unknown]
  - Hypotension [Unknown]
  - Loss of consciousness [Unknown]
  - Ventricular hypokinesia [Unknown]
  - Rash [Unknown]
  - Drug hypersensitivity [Unknown]
  - Urticaria [Unknown]
  - Nausea [Unknown]
  - Vomiting [Unknown]
